FAERS Safety Report 8248605-4 (Version None)
Quarter: 2012Q1

REPORT INFORMATION
  Report Type: 
  Country: None (occurrence: None)
  Receive Date: 20120330
  Receipt Date: 20120321
  Transmission Date: 20120608
  Serious: Yes (Hospitalization, Other)
  Sender: FDA-Public Use
  Company Number: US-ASTRAZENECA-2009UW07358

PATIENT
  Age: 63 Year
  Sex: Female

DRUGS (2)
  1. CRESTOR [Suspect]
     Route: 048
     Dates: start: 20070212
  2. ARIMIDEX [Suspect]
     Route: 048
     Dates: start: 20070212

REACTIONS (5)
  - SINUSITIS [None]
  - ULCERATIVE KERATITIS [None]
  - FOOD ALLERGY [None]
  - CARDIAC DISORDER [None]
  - ADVERSE EVENT [None]
